FAERS Safety Report 10574478 (Version 1)
Quarter: 2014Q4

REPORT INFORMATION
  Report Type: Spontaneous
  Country: FR (occurrence: FR)
  Receive Date: 20141110
  Receipt Date: 20141110
  Transmission Date: 20150529
  Serious: Yes (Other)
  Sender: FDA-Public Use
  Company Number: FR-GLAXOSMITHKLINE-FR2014GSK014671

PATIENT
  Age: 79 Year
  Sex: Male

DRUGS (11)
  1. OXALIPLATINE [Suspect]
     Active Substance: OXALIPLATIN
     Indication: METASTASES TO LIVER
  2. FLUOROURACIL. [Suspect]
     Active Substance: FLUOROURACIL
     Indication: COLON CANCER
     Dosage: UNK
     Route: 042
     Dates: start: 20140731, end: 20140731
  3. OXALIPLATINE [Suspect]
     Active Substance: OXALIPLATIN
     Indication: COLON CANCER
     Dosage: 120 MG, CYC
     Route: 042
     Dates: start: 20140731, end: 20140731
  4. FLUOROURACIL. [Suspect]
     Active Substance: FLUOROURACIL
     Indication: METASTASES TO LIVER
  5. CALCIUM FOLINATE [Suspect]
     Active Substance: LEUCOVORIN CALCIUM
     Indication: PRODUCT USED FOR UNKNOWN INDICATION
     Dosage: 760 MG, CYC
     Route: 042
     Dates: start: 20140731, end: 20140731
  6. ZOPHREN [Suspect]
     Active Substance: ONDANSETRON
     Indication: PRODUCT USED FOR UNKNOWN INDICATION
     Dosage: 8 MG, CYC
     Route: 042
     Dates: start: 20140731, end: 20140731
  7. VECTIBIX [Suspect]
     Active Substance: PANITUMUMAB
     Indication: COLON CANCER
     Dosage: 515 MG, CYC
     Route: 042
     Dates: start: 20140731, end: 20140731
  8. VECTIBIX [Suspect]
     Active Substance: PANITUMUMAB
     Indication: METASTASES TO LIVER
  9. CALCIUM GLUCONATE. [Suspect]
     Active Substance: CALCIUM GLUCONATE
     Indication: PRODUCT USED FOR UNKNOWN INDICATION
     Dosage: 1 G, CYC
     Route: 042
     Dates: start: 20140731, end: 20140731
  10. SOLU-MEDROL [Suspect]
     Active Substance: METHYLPREDNISOLONE SODIUM SUCCINATE
     Indication: PRODUCT USED FOR UNKNOWN INDICATION
     Dosage: 1 UNK, CYC
     Route: 042
     Dates: start: 20140731, end: 20140731
  11. MAGNESIUM SULFATE HYDRATE [Suspect]
     Active Substance: MAGNESIUM SULFATE HEPTAHYDRATE
     Indication: PRODUCT USED FOR UNKNOWN INDICATION
     Dosage: 1 G, CYC
     Route: 042
     Dates: start: 20140731, end: 20140731

REACTIONS (4)
  - Rash pustular [Recovered/Resolved]
  - Mucosal inflammation [Recovered/Resolved]
  - Oedema [Recovered/Resolved]
  - Erythema [Recovered/Resolved]

NARRATIVE: CASE EVENT DATE: 201408
